FAERS Safety Report 6509462-7 (Version None)
Quarter: 2009Q4

REPORT INFORMATION
  Report Type: 
  Country: None (occurrence: None)
  Receive Date: 20091217
  Receipt Date: 20091208
  Transmission Date: 20100525
  Serious: Yes (Hospitalization)
  Sender: FDA-Public Use
  Company Number: 002700

PATIENT
  Sex: Female
  Weight: 98 kg

DRUGS (4)
  1. KEPPRA [Suspect]
     Indication: EPILEPSY
     Dosage: 1000 MG BID ORAL
     Route: 048
     Dates: start: 20090730
  2. TOPIRAMATE [Concomitant]
  3. CLOBAZAM [Concomitant]
  4. CARBAMAZEPINE [Concomitant]

REACTIONS (1)
  - ANAL CANCER [None]
